FAERS Safety Report 11694266 (Version 2)
Quarter: 2015Q4

REPORT INFORMATION
  Report Type: Spontaneous
  Country: US (occurrence: None)
  Receive Date: 20151103
  Receipt Date: 20151113
  Transmission Date: 20160304
  Serious: No
  Sender: FDA-Public Use
  Company Number: US-MDT-ADR-2015-02069

PATIENT
  Age: 7 Year
  Sex: Female

DRUGS (1)
  1. LIORESAL [Suspect]
     Active Substance: BACLOFEN
     Indication: MUSCLE SPASTICITY
     Dosage: 150/D

REACTIONS (4)
  - Somnolence [None]
  - Anaesthetic complication [None]
  - Delayed recovery from anaesthesia [None]
  - Depressed level of consciousness [None]
